FAERS Safety Report 8139522-9 (Version None)
Quarter: 2012Q1

REPORT INFORMATION
  Report Type: 
  Country: None (occurrence: None)
  Receive Date: 20120215
  Receipt Date: 20120208
  Transmission Date: 20120608
  Serious: Yes (Other)
  Sender: FDA-Public Use
  Company Number: CA-BAYER-2012-012613

PATIENT
  Age: 63 Year

DRUGS (1)
  1. NAPROXEN (ALEVE) [Suspect]
     Indication: ARTHRITIS

REACTIONS (5)
  - HYPOAESTHESIA ORAL [None]
  - PARAESTHESIA [None]
  - HYPERSENSITIVITY [None]
  - SWOLLEN TONGUE [None]
  - RASH GENERALISED [None]
